FAERS Safety Report 14121868 (Version 1)
Quarter: 2017Q4

REPORT INFORMATION
  Report Type: Spontaneous
  Country: NO (occurrence: NO)
  Receive Date: 20171024
  Receipt Date: 20171024
  Transmission Date: 20180321
  Serious: Yes (Life-Threatening, Hospitalization)
  Sender: FDA-Public Use
  Company Number: NO-SA-2017SA201932

PATIENT
  Age: 45 Year
  Sex: Male

DRUGS (12)
  1. PARACETAMOL [Concomitant]
     Active Substance: ACETAMINOPHEN
  2. AMLODIPINE [Concomitant]
     Active Substance: AMLODIPINE BESYLATE
  3. KLEXANE [Suspect]
     Active Substance: ENOXAPARIN
     Indication: DIALYSIS
     Route: 058
     Dates: start: 20170918
  4. FURIX [Concomitant]
     Active Substance: FUROSEMIDE
  5. CLONIDINE. [Concomitant]
     Active Substance: CLONIDINE
  6. KEFLIN [Concomitant]
     Active Substance: CEPHALOTHIN SODIUM
  7. KLEXANE [Suspect]
     Active Substance: ENOXAPARIN
     Indication: DIALYSIS
     Dosage: ADMINISTERED THROUGH DIALYSIS CATHETER
     Dates: start: 20170922, end: 20170930
  8. ADALAT [Concomitant]
     Active Substance: NIFEDIPINE
  9. SELOKEN [Concomitant]
     Active Substance: METOPROLOL
  10. CEFTRIAXONE. [Concomitant]
     Active Substance: CEFTRIAXONE
  11. FENTANYL. [Concomitant]
     Active Substance: FENTANYL
  12. PROPOFOL. [Concomitant]
     Active Substance: PROPOFOL

REACTIONS (16)
  - Dyspnoea [Recovered/Resolved]
  - Respiratory failure [Recovered/Resolved]
  - Malaise [Recovered/Resolved]
  - Anaphylactic reaction [Recovered/Resolved]
  - Respiratory disorder [Recovered/Resolved]
  - Circulatory collapse [Recovered/Resolved]
  - Tachycardia [Recovered/Resolved]
  - Anaphylactic reaction [Recovered/Resolved]
  - Tachycardia [Recovered/Resolved]
  - Malaise [Recovered/Resolved]
  - Anaphylactic reaction [Recovered/Resolved]
  - Skin discolouration [Recovered/Resolved]
  - Respiratory disorder [Recovered/Resolved]
  - Oxygen saturation decreased [Recovered/Resolved]
  - Skin discolouration [Recovered/Resolved]
  - Anaphylactic reaction [Recovered/Resolved]

NARRATIVE: CASE EVENT DATE: 20170923
